FAERS Safety Report 11969393 (Version 2)
Quarter: 2017Q3

REPORT INFORMATION
  Report Type: Spontaneous
  Country: US (occurrence: US)
  Receive Date: 20160128
  Receipt Date: 20170824
  Transmission Date: 20171127
  Serious: Yes (Hospitalization, Other)
  Sender: FDA-Public Use
  Company Number: US-SUN PHARMACEUTICAL INDUSTRIES LTD-2016US-110351

PATIENT
  Sex: Female

DRUGS (1)
  1. HYDROCORTISONE. [Suspect]
     Active Substance: HYDROCORTISONE
     Indication: ADRENAL INSUFFICIENCY
     Dosage: 1 MG/KG EVERY 6 H
     Route: 065

REACTIONS (3)
  - Gastric pneumatosis [Recovered/Resolved]
  - Pneumoperitoneum [Recovered/Resolved]
  - Portal venous gas [Recovered/Resolved]
